FAERS Safety Report 10208725 (Version 1)
Quarter: 2014Q2

REPORT INFORMATION
  Report Type: Spontaneous
  Country: AR (occurrence: AR)
  Receive Date: 20140530
  Receipt Date: 20140530
  Transmission Date: 20141212
  Serious: Yes (Other)
  Sender: FDA-Public Use
  Company Number: AR-PFIZER INC-2014147813

PATIENT
  Age: 54 Year
  Sex: Male

DRUGS (1)
  1. SUNITINIB MALATE [Suspect]
     Indication: PANCREATIC CARCINOMA METASTATIC
     Dosage: 37.5 MG, 1X/DAY
     Dates: start: 20110908, end: 201208

REACTIONS (5)
  - Leg amputation [Unknown]
  - Arterial thrombosis [Unknown]
  - Diabetic vascular disorder [Unknown]
  - Disease progression [Unknown]
  - Pancreatic carcinoma metastatic [Unknown]
